FAERS Safety Report 9612545 (Version 1)
Quarter: 2013Q4

REPORT INFORMATION
  Report Type: Spontaneous
  Country: US (occurrence: US)
  Receive Date: 20131010
  Receipt Date: 20131010
  Transmission Date: 20140711
  Serious: No
  Sender: FDA-Public Use
  Company Number: US-BAYER-2013-122127

PATIENT
  Sex: Male

DRUGS (1)
  1. AVELOX [Suspect]
     Indication: IMPETIGO
     Dosage: 400 MG, QD
     Route: 048
     Dates: start: 2012, end: 2012

REACTIONS (3)
  - Panic attack [Recovered/Resolved]
  - Palpitations [Recovered/Resolved]
  - Mobility decreased [Recovered/Resolved]
